FAERS Safety Report 8186530-8 (Version None)
Quarter: 2012Q1

REPORT INFORMATION
  Report Type: 
  Country: None (occurrence: None)
  Receive Date: 20120306
  Receipt Date: 20120227
  Transmission Date: 20120608
  Serious: Yes (Hospitalization)
  Sender: FDA-Public Use
  Company Number: US-BAYER-2011-034112

PATIENT
  Age: 25 Year
  Sex: Female
  Weight: 104.31 kg

DRUGS (6)
  1. ACETAMINOPHEN [Concomitant]
     Dosage: UNK UNK, PRN
     Dates: start: 20090119
  2. LORTAB [Concomitant]
     Indication: PAIN
     Dosage: 5 MG, UNK
     Route: 048
     Dates: start: 20090119
  3. HYDRACHORATHIAZIDE [Concomitant]
     Dosage: 25 MG, QD
  4. YASMIN [Suspect]
     Dosage: UNK
     Dates: start: 20080901, end: 20100101
  5. YAZ [Suspect]
     Dosage: UNK
     Route: 048
     Dates: start: 20080901, end: 20100101
  6. IBUPROFEN TABLETS [Concomitant]
     Dosage: UNK UNK, PRN
     Dates: start: 20000101, end: 20110101

REACTIONS (8)
  - CHOLECYSTITIS ACUTE [None]
  - ANXIETY [None]
  - ABDOMINAL PAIN [None]
  - PYREXIA [None]
  - SYNCOPE [None]
  - GALLBLADDER DISORDER [None]
  - ABDOMINAL PAIN UPPER [None]
  - VOMITING [None]
